FAERS Safety Report 5421278-1 (Version None)
Quarter: 2007Q3

REPORT INFORMATION
  Report Type: 
  Country: None (occurrence: None)
  Receive Date: 20070821
  Receipt Date: 20070814
  Transmission Date: 20080115
  Serious: Yes (Hospitalization)
  Sender: FDA-Public Use
  Company Number: US-ELI_LILLY_AND_COMPANY-US200705004910

PATIENT
  Age: 59 Year
  Sex: Female
  Weight: 87.074 kg

DRUGS (12)
  1. BYETTA [Suspect]
     Indication: TYPE 2 DIABETES MELLITUS
     Dosage: 5 UG, 2/D
     Route: 058
     Dates: start: 20060101, end: 20060101
  2. BYETTA [Suspect]
     Dosage: 10 UG, 2/D
     Route: 058
     Dates: start: 20060101
  3. GLUCOPHAGE [Concomitant]
     Indication: TYPE 2 DIABETES MELLITUS
     Dosage: UNK, UNKNOWN
  4. GLIPIZIDE [Concomitant]
     Indication: TYPE 2 DIABETES MELLITUS
     Dosage: UNK, UNKNOWN
  5. CYMBALTA [Concomitant]
     Indication: DEPRESSION
     Dosage: UNK, UNKNOWN
     Dates: start: 20020101
  6. DIOVAN [Concomitant]
     Indication: HYPERTENSION
     Dosage: UNK, UNKNOWN
     Dates: start: 19920101
  7. ACIPHEX [Concomitant]
     Indication: STOMACH DISCOMFORT
     Dosage: UNK, UNKNOWN
     Dates: start: 20070301
  8. LASIX [Concomitant]
     Indication: FLUID RETENTION
     Dosage: UNK, UNKNOWN
     Dates: start: 19970101
  9. POTASSIUM CHLORIDE [Concomitant]
     Indication: FLUID RETENTION
     Dosage: UNK, UNKNOWN
     Dates: start: 19970101
  10. LYRICA [Concomitant]
     Indication: FIBROMYALGIA
     Dosage: UNK, UNKNOWN
     Dates: start: 20000101
  11. TRAZODONE HCL [Concomitant]
     Indication: INSOMNIA
     Dosage: UNK, UNKNOWN
  12. AMBIEN [Concomitant]
     Indication: INSOMNIA
     Dosage: UNK, UNKNOWN

REACTIONS (7)
  - BLOOD GLUCOSE DECREASED [None]
  - BLOOD GLUCOSE INCREASED [None]
  - INCISION SITE PAIN [None]
  - INCISIONAL HERNIA [None]
  - IRRITABLE BOWEL SYNDROME [None]
  - STRESS [None]
  - WEIGHT DECREASED [None]
